FAERS Safety Report 20088333 (Version 2)
Quarter: 2022Q1

REPORT INFORMATION
  Report Type: Report from Study
  Country: US (occurrence: US)
  Receive Date: 20211118
  Receipt Date: 20220311
  Transmission Date: 20220423
  Serious: Yes (Hospitalization, Other)
  Sender: FDA-Public Use
  Company Number: US-ABBVIE-21K-163-4165453-00

PATIENT
  Sex: Female

DRUGS (1)
  1. RINVOQ [Suspect]
     Active Substance: UPADACITINIB
     Indication: Rheumatoid arthritis
     Route: 048

REACTIONS (9)
  - Ulcer haemorrhage [Unknown]
  - Arthropathy [Unknown]
  - Vein rupture [Unknown]
  - Nephrolithiasis [Unknown]
  - Fluid retention [Unknown]
  - Rectal haemorrhage [Unknown]
  - Faeces hard [Unknown]
  - Cardiac failure congestive [Unknown]
  - Pneumonia [Unknown]
